FAERS Safety Report 8048639-9 (Version None)
Quarter: 2012Q1

REPORT INFORMATION
  Report Type: 
  Country: None (occurrence: None)
  Receive Date: 20120117
  Receipt Date: 20110620
  Transmission Date: 20120608
  Serious: No
  Sender: FDA-Public Use
  Company Number: US-MYLANLABS-2011S1010296

PATIENT
  Age: 18 Year
  Sex: Male

DRUGS (2)
  1. ROCURONIUM BROMIDE [Suspect]
     Indication: PARALYSIS
     Route: 042
     Dates: start: 20110512, end: 20110512
  2. ROCURONIUM BROMIDE [Suspect]
     Indication: SEDATION
     Route: 042
     Dates: start: 20110512, end: 20110512

REACTIONS (1)
  - DRUG INEFFECTIVE [None]
